FAERS Safety Report 21226181 (Version 1)
Quarter: 2022Q3

REPORT INFORMATION
  Report Type: Other
  Country: US (occurrence: None)
  Receive Date: 20220818
  Receipt Date: 20220818
  Transmission Date: 20221027
  Serious: Yes (Hospitalization)
  Sender: FDA-Public Use
  Company Number: US-ROCHE-3157686

PATIENT
  Sex: Female

DRUGS (1)
  1. ESBRIET [Suspect]
     Active Substance: PIRFENIDONE
     Indication: Pneumonia
     Dosage: TAKE 3 TABLET(S) BY MOUTH 3 TIMES A DAY AT THE SAME TIMES EACH DAY
     Route: 048

REACTIONS (2)
  - Pulmonary embolism [Unknown]
  - Off label use [Unknown]
